FAERS Safety Report 24550606 (Version 3)
Quarter: 2024Q4

REPORT INFORMATION
  Report Type: Spontaneous
  Country: US (occurrence: US)
  Receive Date: 20241025
  Receipt Date: 20241230
  Transmission Date: 20250114
  Serious: No
  Sender: FRESENIUS KABI
  Company Number: US-FreseniusKabi-FK202415866

PATIENT
  Age: 56 Year
  Sex: Female
  Weight: 106.5 kg

DRUGS (22)
  1. DIPRIVAN [Suspect]
     Active Substance: PROPOFOL
     Indication: Colonoscopy
     Dosage: FORM OF ADMINISTRATION: INJECTION?GIVEN AT 11:54
     Route: 040
     Dates: start: 20240911
  2. DIPRIVAN [Suspect]
     Active Substance: PROPOFOL
     Indication: Light anaesthesia
     Dosage: FORM OF ADMINISTRATION: INJECTION?GIVEN AT 11:56
     Route: 040
     Dates: start: 20240911
  3. DIPRIVAN [Suspect]
     Active Substance: PROPOFOL
     Indication: Oesophagogastroduodenoscopy
     Dosage: FORM OF ADMINISTRATION: INJECTION?GIVEN AT 12:00
     Route: 040
     Dates: start: 20240911
  4. DIPRIVAN [Suspect]
     Active Substance: PROPOFOL
     Dosage: FORM OF ADMINISTRATION: INJECTION?GIVEN FROM 12:00 TO 12:20
     Route: 041
     Dates: start: 20240911
  5. DIPRIVAN [Suspect]
     Active Substance: PROPOFOL
     Dosage: FORM OF ADMINISTRATION: INJECTION?GIVEN FROM 12:20 TO 13:04
     Route: 041
     Dates: start: 20240911
  6. LIDOCAINE [Suspect]
     Active Substance: LIDOCAINE
     Indication: Sedation
     Dosage: LIDOCAINE PF 2% INJ 5 ML AT  11:54
     Dates: start: 20240911
  7. ADVAIR DISKUS [Concomitant]
     Active Substance: FLUTICASONE PROPIONATE\SALMETEROL XINAFOATE
     Indication: Product used for unknown indication
     Dosage: 500 MCG/50 MCG INH PWD (INHALED POWDER)
  8. ALBUTEROL [Concomitant]
     Active Substance: ALBUTEROL
     Indication: Product used for unknown indication
     Dosage: METERED DOSE INHALER
  9. ATIVAN [Concomitant]
     Active Substance: LORAZEPAM
     Indication: Product used for unknown indication
     Dosage: 2MG TAB (TABLET)
  10. CALCIUM\VITAMIN D [Concomitant]
     Active Substance: CALCIUM\VITAMIN D
     Indication: Product used for unknown indication
     Dosage: 600 MG-400 INTL UNITS TAB (TABLET)
  11. CLARITIN [Concomitant]
     Active Substance: LORATADINE
     Indication: Product used for unknown indication
     Dosage: 10MG TAB (TABLET)
  12. DICLOFENAC [Concomitant]
     Active Substance: DICLOFENAC
     Indication: Product used for unknown indication
     Dosage: TOPICAL GEL
     Route: 061
  13. FOLIC ACID [Concomitant]
     Active Substance: FOLIC ACID
     Indication: Product used for unknown indication
     Dosage: 1MG TAB (TABLET)
  14. FLONASE [Concomitant]
     Active Substance: FLUTICASONE PROPIONATE
     Indication: Product used for unknown indication
  15. HYDROCORTISONE [Concomitant]
     Active Substance: HYDROCORTISONE
     Indication: Product used for unknown indication
     Dosage: TOPICAL CREAM
     Route: 061
  16. MAGNESIUM OXIDE [Concomitant]
     Active Substance: MAGNESIUM OXIDE
     Indication: Product used for unknown indication
     Route: 048
  17. MONTELUKAST [Concomitant]
     Active Substance: MONTELUKAST SODIUM
     Indication: Product used for unknown indication
     Dosage: 10MG TAB (TABLET)
  18. Ocean 0.65 percent [Concomitant]
     Indication: Product used for unknown indication
     Dosage: NASAL SPRAY
  19. ONDANSETRON [Concomitant]
     Active Substance: ONDANSETRON
     Indication: Product used for unknown indication
     Dosage: 4MG TAB (TABLET)
  20. PRILOSEC [Concomitant]
     Active Substance: OMEPRAZOLE MAGNESIUM
     Indication: Product used for unknown indication
     Dosage: 20MG CAP (CAPSULE)
  21. VITAMIN D3 [Concomitant]
     Active Substance: CHOLECALCIFEROL
     Indication: Product used for unknown indication
     Dosage: 2000INTL UNITS TAB (TABLET)
  22. WELLBUTRIN XL [Concomitant]
     Active Substance: BUPROPION HYDROCHLORIDE
     Indication: Product used for unknown indication
     Dosage: 300MG/24 HR ORAL TAB (TABLET)

REACTIONS (2)
  - Therapeutic product effect decreased [Unknown]
  - Off label use [Unknown]

NARRATIVE: CASE EVENT DATE: 20240911
